FAERS Safety Report 18864384 (Version 6)
Quarter: 2021Q2

REPORT INFORMATION
  Report Type: Spontaneous
  Country: US (occurrence: US)
  Receive Date: 20210208
  Receipt Date: 20210614
  Transmission Date: 20210717
  Serious: Yes (Hospitalization)
  Sender: FDA-Public Use
  Company Number: US-CELGENEUS-USA-20210200964

PATIENT
  Sex: Male

DRUGS (3)
  1. REVLIMID [Suspect]
     Active Substance: LENALIDOMIDE
     Indication: PLASMA CELL MYELOMA
     Dosage: 25 MILLIGRAM
     Route: 048
     Dates: start: 202002
  2. REVLIMID [Suspect]
     Active Substance: LENALIDOMIDE
     Dosage: 10 MILLIGRAM
     Route: 048
     Dates: start: 20210204
  3. REVLIMID [Suspect]
     Active Substance: LENALIDOMIDE
     Dosage: 5 MILLIGRAM
     Route: 048
     Dates: start: 202103

REACTIONS (12)
  - Pruritus [Not Recovered/Not Resolved]
  - Fall [Unknown]
  - Faeces discoloured [Unknown]
  - Decreased appetite [Unknown]
  - Diarrhoea [Unknown]
  - Ageusia [Unknown]
  - Dyspnoea [Not Recovered/Not Resolved]
  - Asthenia [Unknown]
  - Anosmia [Unknown]
  - Sensitive skin [Not Recovered/Not Resolved]
  - Malaise [Unknown]
  - Musculoskeletal chest pain [Unknown]

NARRATIVE: CASE EVENT DATE: 2021
